FAERS Safety Report 19895778 (Version 2)
Quarter: 2021Q4

REPORT INFORMATION
  Report Type: Spontaneous
  Country: ES (occurrence: ES)
  Receive Date: 20210929
  Receipt Date: 20211014
  Transmission Date: 20220303
  Serious: No
  Sender: FDA-Public Use
  Company Number: ES-LUPIN PHARMACEUTICALS INC.-2021-18116

PATIENT
  Age: 87 Year
  Sex: Female

DRUGS (2)
  1. VANCOMYCIN [Suspect]
     Active Substance: VANCOMYCIN
     Indication: Endocarditis bacterial
     Dosage: UNK
     Route: 065
     Dates: start: 2018
  2. RIFAMPIN [Suspect]
     Active Substance: RIFAMPIN
     Indication: Endocarditis bacterial
     Dosage: UNK
     Route: 065
     Dates: start: 2018

REACTIONS (2)
  - Gastrointestinal disorder [Unknown]
  - Rash [Unknown]

NARRATIVE: CASE EVENT DATE: 20180101
